FAERS Safety Report 10619464 (Version 1)
Quarter: 2014Q4

REPORT INFORMATION
  Report Type: Spontaneous
  Country: US (occurrence: US)
  Receive Date: 20141202
  Receipt Date: 20141202
  Transmission Date: 20150529
  Serious: Yes (Hospitalization, Other)
  Sender: FDA-Public Use
  Company Number: US-SA-2014SA163045

PATIENT
  Age: 64 Year
  Sex: Female
  Weight: 62 kg

DRUGS (37)
  1. IMBRUVICA [Suspect]
     Active Substance: IBRUTINIB
     Indication: CHRONIC LYMPHOCYTIC LEUKAEMIA
     Route: 048
     Dates: start: 20140903
  2. PENICILLIN V POTASSIUM. [Concomitant]
     Active Substance: PENICILLIN V POTASSIUM
  3. SEROQUEL [Concomitant]
     Active Substance: QUETIAPINE FUMARATE
  4. PANCRELIPASE. [Concomitant]
     Active Substance: PANCRELIPASE
  5. IMBRUVICA [Suspect]
     Active Substance: IBRUTINIB
     Indication: CHRONIC LYMPHOCYTIC LEUKAEMIA
     Route: 048
     Dates: start: 20140604, end: 20140823
  6. CELLCEPT [Concomitant]
     Active Substance: MYCOPHENOLATE MOFETIL\MYCOPHENOLATE MOFETIL HYDROCHLORIDE
  7. GABAPENTIN. [Concomitant]
     Active Substance: GABAPENTIN
  8. AMLODIPINE BESILATE [Concomitant]
     Active Substance: AMLODIPINE BESYLATE
  9. TRIAMCINOLONE ACETONIDE. [Concomitant]
     Active Substance: TRIAMCINOLONE ACETONIDE
  10. VITAMIN D3 [Concomitant]
     Active Substance: CHOLECALCIFEROL
  11. FENTANYL. [Concomitant]
     Active Substance: FENTANYL
     Dosage: FORM: PATCH
  12. LOMOTIL [Concomitant]
     Active Substance: ATROPINE SULFATE\DIPHENOXYLATE HYDROCHLORIDE
  13. MEGACE [Concomitant]
     Active Substance: MEGESTROL ACETATE
  14. LOVENOX [Suspect]
     Active Substance: ENOXAPARIN SODIUM
     Indication: DEEP VEIN THROMBOSIS
     Route: 065
  15. IMBRUVICA [Suspect]
     Active Substance: IBRUTINIB
     Indication: CHRONIC LYMPHOCYTIC LEUKAEMIA
     Route: 048
     Dates: start: 20140411, end: 20140603
  16. TACROLIMUS. [Concomitant]
     Active Substance: TACROLIMUS
  17. ACYCLOVIR. [Concomitant]
     Active Substance: ACYCLOVIR
  18. BONIVA [Concomitant]
     Active Substance: IBANDRONATE SODIUM
  19. NORVASC [Concomitant]
     Active Substance: AMLODIPINE BESYLATE
  20. PROMETHAZINE HYDROCHLORIDE. [Concomitant]
     Active Substance: PROMETHAZINE HYDROCHLORIDE
  21. MAGNESIUM OXIDE. [Concomitant]
     Active Substance: MAGNESIUM OXIDE
  22. WELLBUTRIN [Concomitant]
     Active Substance: BUPROPION HYDROCHLORIDE
  23. RENA-VITE [Concomitant]
     Active Substance: VITAMINS
  24. THERAGRAN-M [Concomitant]
     Active Substance: VITAMINS
  25. PRILOSEC [Concomitant]
     Active Substance: OMEPRAZOLE MAGNESIUM
  26. EMLA [Concomitant]
     Active Substance: LIDOCAINE\PRILOCAINE
  27. HYDROXYZINE HYDROCHLORIDE. [Concomitant]
     Active Substance: HYDROXYZINE HYDROCHLORIDE
  28. DETROL [Concomitant]
     Active Substance: TOLTERODINE TARTRATE
  29. FLUCONAZOLE. [Concomitant]
     Active Substance: FLUCONAZOLE
  30. LAMICTAL [Concomitant]
     Active Substance: LAMOTRIGINE
  31. ASPIRIN. [Concomitant]
     Active Substance: ASPIRIN
  32. VORICONAZOLE. [Concomitant]
     Active Substance: VORICONAZOLE
  33. ALPRAZOLAM. [Concomitant]
     Active Substance: ALPRAZOLAM
  34. DAPSONE. [Concomitant]
     Active Substance: DAPSONE
  35. OXYCODONE [Concomitant]
     Active Substance: OXYCODONE
  36. VITAMIN D [Concomitant]
     Active Substance: CHOLECALCIFEROL
  37. PAXIL [Concomitant]
     Active Substance: PAROXETINE HYDROCHLORIDE

REACTIONS (19)
  - Dental caries [Unknown]
  - Tooth fracture [Unknown]
  - Autoimmune haemolytic anaemia [Unknown]
  - Fatigue [Unknown]
  - Chest pain [Unknown]
  - Hernia [Unknown]
  - Tooth abscess [Unknown]
  - Deep vein thrombosis [Unknown]
  - Weight decreased [Unknown]
  - Seizure [Recovered/Resolved]
  - Peritoneal haemorrhage [Unknown]
  - Mental status changes [Unknown]
  - Cellulitis [Unknown]
  - Klebsiella sepsis [Recovered/Resolved]
  - Abdominal pain [Unknown]
  - Pancytopenia [Unknown]
  - Hepatic haematoma [Recovered/Resolved]
  - Platelet count decreased [Recovered/Resolved]
  - Accidental overdose [Unknown]

NARRATIVE: CASE EVENT DATE: 20140720
